FAERS Safety Report 11975259 (Version 1)
Quarter: 2016Q1

REPORT INFORMATION
  Report Type: Report from Study
  Country: US (occurrence: US)
  Receive Date: 20160128
  Receipt Date: 20160128
  Transmission Date: 20160526
  Serious: Yes (Hospitalization, Other)
  Sender: FDA-Public Use
  Company Number: US-GILEAD-2016-0194443

PATIENT
  Sex: Male

DRUGS (1)
  1. EMTRICITABINE/TENOFOVIR DISOPROXIL FUMARATE [Suspect]
     Active Substance: EMTRICITABINE\TENOFOVIR DISOPROXIL
     Indication: ACQUIRED IMMUNODEFICIENCY SYNDROME
     Dosage: 500 MG, UNK
     Route: 048

REACTIONS (6)
  - CD4 lymphocytes decreased [Unknown]
  - Fall [Unknown]
  - Tooth loss [Unknown]
  - Spinal operation [Unknown]
  - Treatment noncompliance [Unknown]
  - Road traffic accident [Unknown]
